FAERS Safety Report 6969481-3 (Version None)
Quarter: 2010Q3

REPORT INFORMATION
  Report Type: 
  Country: None (occurrence: None)
  Receive Date: 20100907
  Receipt Date: 20100831
  Transmission Date: 20110219
  Serious: Yes (Hospitalization)
  Sender: FDA-Public Use
  Company Number: US-GENENTECH-303321

PATIENT
  Sex: Male
  Weight: 96.145 kg

DRUGS (3)
  1. XOLAIR [Suspect]
     Indication: ASTHMA
     Dosage: UNK
     Route: 058
     Dates: end: 20100612
  2. XOLAIR [Suspect]
     Indication: PNEUMONIA
  3. STEROID (NAME UNKNOWN) [Concomitant]
     Indication: PRODUCT USED FOR UNKNOWN INDICATION

REACTIONS (6)
  - ALLERGIC GRANULOMATOUS ANGIITIS [None]
  - CEREBROVASCULAR ACCIDENT [None]
  - DYSPNOEA [None]
  - SINUSITIS [None]
  - TUNNEL VISION [None]
  - VASCULITIS [None]
